FAERS Safety Report 5314835-4 (Version None)
Quarter: 2007Q2

REPORT INFORMATION
  Report Type: 
  Country: None (occurrence: None)
  Receive Date: 20070502
  Receipt Date: 20070423
  Transmission Date: 20071010
  Serious: Yes (Life-Threatening, Hospitalization)
  Sender: FDA-Public Use
  Company Number: NO-MERCK-0704NOR00006

PATIENT
  Age: 65 Year
  Sex: Female

DRUGS (9)
  1. ALDOMET [Suspect]
     Indication: HYPERTENSION
     Route: 048
     Dates: start: 20070218, end: 20070219
  2. RAMIPRIL [Concomitant]
     Route: 048
  3. FUROSEMIDE [Concomitant]
     Route: 048
  4. ASPIRIN AND MAGNESIUM OXIDE [Concomitant]
     Route: 048
  5. ESCITALOPRAM OXALATE [Suspect]
     Indication: DEPRESSION
     Route: 048
     Dates: end: 20070219
  6. ACETAMINOPHEN [Concomitant]
     Route: 048
  7. ALFACALCIDOL [Concomitant]
     Route: 065
  8. ESOMEPRAZOLE MAGNESIUM [Concomitant]
     Route: 048
  9. IRBESARTAN [Concomitant]
     Route: 048

REACTIONS (15)
  - AKATHISIA [None]
  - AUTONOMIC NERVOUS SYSTEM IMBALANCE [None]
  - BLOOD PRESSURE FLUCTUATION [None]
  - BODY TEMPERATURE INCREASED [None]
  - CONFUSIONAL STATE [None]
  - DRUG INTERACTION [None]
  - DYSPRAXIA [None]
  - GRAND MAL CONVULSION [None]
  - HYPERTENSION [None]
  - NEGLECT OF PERSONAL APPEARANCE [None]
  - NEUROLOGICAL SYMPTOM [None]
  - SEROTONIN SYNDROME [None]
  - SOMNOLENCE [None]
  - TACHYCARDIA [None]
  - UNRESPONSIVE TO STIMULI [None]
